FAERS Safety Report 8283402-5 (Version None)
Quarter: 2012Q2

REPORT INFORMATION
  Report Type: 
  Country: None (occurrence: None)
  Receive Date: 20120413
  Receipt Date: 20120405
  Transmission Date: 20120825
  Serious: Yes (Hospitalization)
  Sender: FDA-Public Use
  Company Number: US-MILLENNIUM PHARMACEUTICALS, INC.-2011-05313

PATIENT
  Sex: Female
  Weight: 68.027 kg

DRUGS (3)
  1. VELCADE [Suspect]
     Dosage: 0.7 MG/M2, UNK
  2. VELCADE [Suspect]
     Indication: MULTIPLE MYELOMA
     Dosage: 1.3 MG, UNK
     Route: 042
     Dates: start: 20110609, end: 20111213
  3. REVLIMID [Concomitant]
     Indication: MULTIPLE MYELOMA

REACTIONS (4)
  - PERICARDIAL EFFUSION [None]
  - HYPOTENSION [None]
  - EYE INFECTION [None]
  - HYPOALBUMINAEMIA [None]
